FAERS Safety Report 15811536 (Version 1)
Quarter: 2019Q1

REPORT INFORMATION
  Report Type: Spontaneous
  Country: IN (occurrence: IN)
  Receive Date: 20190111
  Receipt Date: 20190111
  Transmission Date: 20190417
  Serious: Yes (Other)
  Sender: FDA-Public Use
  Company Number: IN-TORRENT-00002089

PATIENT
  Age: 54 Year
  Sex: Female

DRUGS (1)
  1. OLMESARTAN [Suspect]
     Active Substance: OLMESARTAN
     Indication: HYPERTENSION
     Dosage: 40 MG TABLET ONCE A DAILY
     Dates: start: 2016

REACTIONS (3)
  - Gastritis [Recovering/Resolving]
  - Vomiting [Recovering/Resolving]
  - Weight decreased [Unknown]
